FAERS Safety Report 16387757 (Version 6)
Quarter: 2019Q3

REPORT INFORMATION
  Report Type: Report from Study
  Country: None (occurrence: DE)
  Receive Date: 20190604
  Receipt Date: 20190909
  Transmission Date: 20191004
  Serious: Yes (Hospitalization)
  Sender: FDA-Public Use
  Company Number: DE-ABBVIE-19S-062-2805806-00

PATIENT
  Age: 80 Year
  Sex: Male

DRUGS (13)
  1. LEVODOPA [Concomitant]
     Active Substance: LEVODOPA
     Indication: PRODUCT USED FOR UNKNOWN INDICATION
     Dosage: 200/50 MG AT NIGHT
  2. FOLSAN [Concomitant]
     Active Substance: FOLIC ACID
     Indication: PRODUCT USED FOR UNKNOWN INDICATION
  3. MILGAMMA [Concomitant]
     Indication: PRODUCT USED FOR UNKNOWN INDICATION
  4. NOVORAPID [Concomitant]
     Active Substance: INSULIN ASPART
     Indication: PRODUCT USED FOR UNKNOWN INDICATION
  5. TORASEMIDE [Concomitant]
     Active Substance: TORSEMIDE
     Indication: PRODUCT USED FOR UNKNOWN INDICATION
  6. CORVO HCT [Concomitant]
     Active Substance: ENALAPRIL MALEATE\HYDROCHLOROTHIAZIDE
     Indication: PRODUCT USED FOR UNKNOWN INDICATION
     Dosage: 10/25 MG
  7. DUODOPA [Suspect]
     Active Substance: CARBIDOPA\LEVODOPA
     Dosage: MD 8.0 ML; CRD 3.2 ML/HR; ED 1.8 ML
     Route: 050
     Dates: start: 2019, end: 2019
  8. ACETYLSALICYLIC ACID [Concomitant]
     Active Substance: ASPIRIN
     Indication: PRODUCT USED FOR UNKNOWN INDICATION
  9. TOUJEO [Concomitant]
     Active Substance: INSULIN GLARGINE
     Indication: PRODUCT USED FOR UNKNOWN INDICATION
  10. DUODOPA [Suspect]
     Active Substance: CARBIDOPA\LEVODOPA
     Dosage: MD 4.5 ML, CRD 2.6 ML/HR, ED 1.8 ML?DAILY RATE WAS CHANGED TO 3,0 ML/H.
     Route: 050
     Dates: start: 2019
  11. DUODOPA [Suspect]
     Active Substance: CARBIDOPA\LEVODOPA
     Dosage: MD 8.0 ML; CRD 3.0 ML/HR; ED 1.8 ML
     Route: 050
     Dates: start: 2019, end: 2019
  12. RIVOTRIL [Concomitant]
     Active Substance: CLONAZEPAM
     Indication: PRODUCT USED FOR UNKNOWN INDICATION
  13. DUODOPA [Suspect]
     Active Substance: CARBIDOPA\LEVODOPA
     Indication: PARKINSON^S DISEASE
     Dosage: MORNING DOSE: 8.0 ML; CRD 3.5 ML/HR; EXTRA DOSE: 1.8 ML
     Route: 050
     Dates: start: 20160405, end: 2019

REACTIONS (4)
  - Stoma site inflammation [Not Recovered/Not Resolved]
  - Hyperkinesia [Not Recovered/Not Resolved]
  - Bacterial disease carrier [Not Recovered/Not Resolved]
  - Embedded device [Not Recovered/Not Resolved]

NARRATIVE: CASE EVENT DATE: 20190607
